FAERS Safety Report 16323213 (Version 4)
Quarter: 2019Q3

REPORT INFORMATION
  Report Type: Report from Study
  Country: US (occurrence: US)
  Receive Date: 20190517
  Receipt Date: 20190708
  Transmission Date: 20191004
  Serious: Yes (Hospitalization, Other)
  Sender: FDA-Public Use
  Company Number: PHEH2019US021004

PATIENT
  Age: 29 Year
  Sex: Female

DRUGS (2)
  1. GILENYA [Suspect]
     Active Substance: FINGOLIMOD HYDROCHLORIDE
     Indication: MULTIPLE SCLEROSIS
     Dosage: 0.5 MG, QD
     Route: 048
     Dates: start: 20160513
  2. GILENYA [Suspect]
     Active Substance: FINGOLIMOD HYDROCHLORIDE
     Indication: RELAPSING-REMITTING MULTIPLE SCLEROSIS
     Dosage: 0.5 MG, QD
     Route: 048
     Dates: start: 20160601, end: 20190605

REACTIONS (18)
  - Photophobia [Unknown]
  - Hypoaesthesia [Unknown]
  - Clumsiness [Unknown]
  - Paresis [Unknown]
  - Asthenia [Not Recovered/Not Resolved]
  - Noninfective encephalitis [Unknown]
  - Visual impairment [Unknown]
  - Fatigue [Unknown]
  - Hemiparesis [Unknown]
  - Progressive multifocal leukoencephalopathy [Unknown]
  - Central nervous system lesion [Unknown]
  - Dysarthria [Unknown]
  - Hypokinesia [Not Recovered/Not Resolved]
  - Nervous system disorder [Unknown]
  - Sensory loss [Unknown]
  - Balance disorder [Not Recovered/Not Resolved]
  - Aphasia [Unknown]
  - Vision blurred [Unknown]

NARRATIVE: CASE EVENT DATE: 20190427
